FAERS Safety Report 18607910 (Version 1)
Quarter: 2020Q4

REPORT INFORMATION
  Report Type: Spontaneous
  Country: RU (occurrence: RU)
  Receive Date: 20201211
  Receipt Date: 20201211
  Transmission Date: 20210114
  Serious: Yes (Life-Threatening, Other)
  Sender: FDA-Public Use
  Company Number: RU-B.I. PHARMACEUTICALS,INC./RIDGEFIELD-2020-BI-067663

PATIENT
  Age: 30 Year
  Sex: Male
  Weight: 75 kg

DRUGS (1)
  1. MOVALIS [Suspect]
     Active Substance: MELOXICAM
     Indication: MUSCULOSKELETAL PAIN
     Route: 048
     Dates: start: 20201201, end: 20201207

REACTIONS (2)
  - Gastric ulcer [Recovered/Resolved]
  - Appendicitis [Recovered/Resolved]

NARRATIVE: CASE EVENT DATE: 20201207
